FAERS Safety Report 7769579-6 (Version None)
Quarter: 2011Q3

REPORT INFORMATION
  Report Type: 
  Country: None (occurrence: None)
  Receive Date: 20110922
  Receipt Date: 20100416
  Transmission Date: 20111222
  Serious: No
  Sender: FDA-Public Use
  Company Number: US-ASTRAZENECA-2008UW24360

PATIENT
  Age: 728 Month
  Sex: Female
  Weight: 122.9 kg

DRUGS (8)
  1. DEXATRIM [Concomitant]
     Dates: start: 19790101, end: 19800101
  2. FLUOXETINE [Concomitant]
     Route: 048
     Dates: start: 20011120
  3. CONTACT COLD [Concomitant]
     Dates: start: 19790101, end: 19800101
  4. ATIVAN [Concomitant]
  5. SEROQUEL [Suspect]
     Dosage: 25 MG, 50 MG,400 MG
     Route: 048
     Dates: start: 20040101
  6. SEROQUEL [Suspect]
     Indication: BRADYPHRENIA
     Route: 048
     Dates: start: 20010906
  7. AMITRIPTYLINE HCL [Concomitant]
     Route: 048
     Dates: start: 20010706
  8. LORAZEPAM [Concomitant]
     Route: 048
     Dates: start: 20011026

REACTIONS (2)
  - FEELING ABNORMAL [None]
  - DIABETES MELLITUS [None]
